FAERS Safety Report 16864436 (Version 4)
Quarter: 2022Q3

REPORT INFORMATION
  Report Type: Report from Study
  Country: FR (occurrence: FR)
  Receive Date: 20190928
  Receipt Date: 20220714
  Transmission Date: 20221027
  Serious: Yes (Hospitalization, Disabling)
  Sender: FDA-Public Use
  Company Number: FR-ABBVIE-19S-056-2741810-00

PATIENT
  Age: 85 Year
  Sex: Male

DRUGS (3)
  1. CARBIDOPA\LEVODOPA [Suspect]
     Active Substance: CARBIDOPA\LEVODOPA
     Indication: Parkinson^s disease
     Dosage: MD: 10 ML, CD DAY: 4.1 ML/H, ED? 2.5 ML
     Route: 050
     Dates: start: 201804
  2. CARBIDOPA\LEVODOPA [Suspect]
     Active Substance: CARBIDOPA\LEVODOPA
  3. CLOZAPINE [Suspect]
     Active Substance: CLOZAPINE
     Indication: Hallucination
     Route: 065

REACTIONS (34)
  - Retinal detachment [Unknown]
  - Unevaluable event [Unknown]
  - Dysphagia [Unknown]
  - Bedridden [Unknown]
  - Speech disorder [Not Recovered/Not Resolved]
  - Platelet count abnormal [Not Recovered/Not Resolved]
  - Cognitive disorder [Not Recovered/Not Resolved]
  - Incorrect route of product administration [Unknown]
  - Behaviour disorder [Unknown]
  - White blood cell count abnormal [Not Recovered/Not Resolved]
  - Intentional medical device removal by patient [Unknown]
  - Balance disorder [Unknown]
  - Wrong technique in device usage process [Unknown]
  - Device physical property issue [Unknown]
  - Fall [Recovering/Resolving]
  - Fatigue [Unknown]
  - Aggression [Not Recovered/Not Resolved]
  - Confusional state [Unknown]
  - Abdominal pain [Unknown]
  - Constipation [Unknown]
  - Disorientation [Unknown]
  - Stoma site erythema [Unknown]
  - Stoma site discharge [Unknown]
  - Stoma site inflammation [Unknown]
  - Stoma site extravasation [Unknown]
  - Hallucination [Unknown]
  - Dysphagia [Not Recovered/Not Resolved]
  - Dyskinesia [Unknown]
  - Freezing phenomenon [Unknown]
  - Drug ineffective [Unknown]
  - Device leakage [Recovered/Resolved]
  - Device leakage [Unknown]
  - Device dislocation [Recovered/Resolved]
  - Device dislocation [Unknown]

NARRATIVE: CASE EVENT DATE: 20181201
